FAERS Safety Report 23946270 (Version 1)
Quarter: 2024Q2

REPORT INFORMATION
  Report Type: Spontaneous
  Country: US (occurrence: US)
  Receive Date: 20240606
  Receipt Date: 20240606
  Transmission Date: 20240716
  Serious: No
  Sender: FDA-Public Use
  Company Number: US-MYLANLABS-2024M1042706

PATIENT
  Sex: Female
  Weight: 58.06 kg

DRUGS (1)
  1. XULANE [Suspect]
     Active Substance: ETHINYL ESTRADIOL\NORELGESTROMIN
     Indication: Contraception
     Dosage: 150 MICROGRAM, QD (150/35 MICROGRAM ONCE A WEEK)
     Route: 062
     Dates: start: 202405

REACTIONS (3)
  - Menstruation delayed [Unknown]
  - Hypomenorrhoea [Unknown]
  - Product packaging quantity issue [Unknown]
